FAERS Safety Report 5367294-X (Version None)
Quarter: 2007Q2

REPORT INFORMATION
  Report Type: 
  Country: None (occurrence: None)
  Receive Date: 20070619
  Receipt Date: 20070604
  Transmission Date: 20071010
  Serious: Yes (Hospitalization)
  Sender: FDA-Public Use
  Company Number: GXKR2007AU04826

PATIENT
  Age: 53 Year
  Sex: Female

DRUGS (4)
  1. PAROXETINE HCL [Suspect]
     Indication: DEPRESSION
     Dosage: 20 MG;  SEE IMAGE
  2. ..................... [Concomitant]
  3. TRAMADOL HCL [Suspect]
     Dosage: SEE IMAGE
  4. ALPRAZOLAM [Concomitant]

REACTIONS (6)
  - DELUSION OF GRANDEUR [None]
  - DRUG INTERACTION [None]
  - DYSARTHRIA [None]
  - GRAND MAL CONVULSION [None]
  - MANIA [None]
  - SEROTONIN SYNDROME [None]
